FAERS Safety Report 19048346 (Version 2)
Quarter: 2021Q4

REPORT INFORMATION
  Report Type: Spontaneous
  Country: US (occurrence: US)
  Receive Date: 20210324
  Receipt Date: 20211215
  Transmission Date: 20220303
  Serious: No
  Sender: FDA-Public Use
  Company Number: US-AUROBINDO-AUR-APL-2021-003884

PATIENT
  Age: 32 Year
  Sex: Female
  Weight: 124 kg

DRUGS (1)
  1. PROGESTERONE [Suspect]
     Active Substance: PROGESTERONE
     Indication: Infertility
     Dosage: 01 MILLILITER, ONCE A DAY
     Route: 065
     Dates: start: 20210123

REACTIONS (1)
  - Product contamination physical [Unknown]
